FAERS Safety Report 21208065 (Version 1)
Quarter: 2022Q3

REPORT INFORMATION
  Report Type: Spontaneous
  Country: US (occurrence: None)
  Receive Date: 20220811
  Receipt Date: 20220811
  Transmission Date: 20221026
  Serious: Yes (Hospitalization)
  Sender: FDA-Public Use
  Company Number: None

PATIENT
  Age: 70 Year
  Sex: Female

DRUGS (1)
  1. XIFAXAN [Suspect]
     Active Substance: RIFAXIMIN
     Indication: Hepatic failure
     Dosage: FREQUENCY : TWICE A DAY;?
     Route: 048
     Dates: start: 20180803

REACTIONS (3)
  - Septic shock [None]
  - Pneumonia [None]
  - Cellulitis [None]

NARRATIVE: CASE EVENT DATE: 20220413
